FAERS Safety Report 24571381 (Version 1)
Quarter: 2024Q4

REPORT INFORMATION
  Report Type: Spontaneous
  Country: US (occurrence: US)
  Receive Date: 20241101
  Receipt Date: 20241101
  Transmission Date: 20250115
  Serious: Yes (Other)
  Sender: HIKMA PHARMACEUTICALS USA INC.
  Company Number: US-MLMSERVICE-20241017-PI228625-00218-1

PATIENT
  Age: 60 Year
  Sex: Female

DRUGS (2)
  1. METHOTREXATE [Suspect]
     Active Substance: METHOTREXATE
     Indication: Proliferative vitreoretinopathy
     Dosage: TOTAL OF FIVE INTRAVITREAL METHOTREXATE INJECTIONS (400 MCG/0.1ML) POSTOPERATIVELY OVER A TWO-MONTH
  2. METHOTREXATE [Suspect]
     Active Substance: METHOTREXATE
     Indication: Eye disorder prophylaxis

REACTIONS (1)
  - Vitreous disorder [Recovered/Resolved]
